FAERS Safety Report 23231956 (Version 1)
Quarter: 2023Q4

REPORT INFORMATION
  Report Type: Spontaneous
  Country: US (occurrence: None)
  Receive Date: 20231126
  Receipt Date: 20231126
  Transmission Date: 20240110
  Serious: No
  Sender: FDA-Public Use
  Company Number: None

PATIENT
  Age: 41 Year
  Sex: Female
  Weight: 58.5 kg

DRUGS (5)
  1. EQUATE EYE DROPS [Suspect]
     Active Substance: TETRAHYDROZOLINE HYDROCHLORIDE
     Indication: Dry eye
     Dosage: OTHER QUANTITY : 3 DROP(S);?FREQUENCY : AS NEEDED;?
     Route: 047
  2. GABAPENTIN [Concomitant]
     Active Substance: GABAPENTIN
  3. DICLOFENAC [Concomitant]
     Active Substance: DICLOFENAC
  4. OXYCODONE [Concomitant]
     Active Substance: OXYCODONE
  5. Nerve stimulation machine implant [Concomitant]

REACTIONS (6)
  - Instillation site irritation [None]
  - Ocular hyperaemia [None]
  - Eye irritation [None]
  - Vision blurred [None]
  - Impaired driving ability [None]
  - Impaired work ability [None]

NARRATIVE: CASE EVENT DATE: 20231108
